FAERS Safety Report 12424785 (Version 2)
Quarter: 2016Q2

REPORT INFORMATION
  Report Type: Spontaneous
  Country: None (occurrence: CH)
  Receive Date: 20160601
  Receipt Date: 20160608
  Transmission Date: 20160815
  Serious: Yes (Hospitalization)
  Sender: FDA-Public Use
  Company Number: CH-MERCK KGAA-1053002

PATIENT

DRUGS (1)
  1. NOVOTHYROX [Suspect]
     Active Substance: LEVOTHYROXINE SODIUM

REACTIONS (5)
  - Rash [None]
  - Hepatic enzyme increased [None]
  - Pyrexia [None]
  - Eosinophilia [None]
  - Drug reaction with eosinophilia and systemic symptoms [None]
